FAERS Safety Report 7672845-6 (Version None)
Quarter: 2011Q3

REPORT INFORMATION
  Report Type: 
  Country: None (occurrence: None)
  Receive Date: 20110809
  Receipt Date: 20110727
  Transmission Date: 20111222
  Serious: No
  Sender: FDA-Public Use
  Company Number: US-B.I. PHARMACEUTICALS,INC./RIDGEFIELD-2011-BP-18635BP

PATIENT
  Sex: Female

DRUGS (5)
  1. CILOSTAZOL [Concomitant]
     Indication: THROMBOSIS
     Dosage: 200 MG
  2. DIOVAN [Concomitant]
     Indication: HYPERTENSION
     Dosage: 160 MG
  3. SYMBICORT [Concomitant]
     Indication: CHRONIC OBSTRUCTIVE PULMONARY DISEASE
  4. M.V.I. [Concomitant]
     Indication: SUPPLEMENTATION THERAPY
  5. SPIRIVA [Suspect]
     Indication: CHRONIC OBSTRUCTIVE PULMONARY DISEASE
     Dosage: 18 MCG
     Route: 055
     Dates: start: 20110201

REACTIONS (2)
  - URINARY INCONTINENCE [None]
  - DYSPNOEA [None]
